FAERS Safety Report 18159101 (Version 1)
Quarter: 2020Q3

REPORT INFORMATION
  Report Type: Report from Study
  Country: DE (occurrence: PL)
  Receive Date: 20200817
  Receipt Date: 20200817
  Transmission Date: 20201103
  Serious: Yes (Other)
  Sender: FDA-Public Use
  Company Number: PL-ELI_LILLY_AND_COMPANY-PL202008005030

PATIENT
  Age: 50 Year
  Sex: Male
  Weight: 76 kg

DRUGS (4)
  1. CETUXIMAB. [Suspect]
     Active Substance: CETUXIMAB
     Indication: COLORECTAL CANCER METASTATIC
     Dosage: 500 MG/M2, EVERY 2 WEEKS
     Route: 042
     Dates: start: 20200227, end: 20200709
  2. FOLINIC ACID [Concomitant]
     Active Substance: LEUCOVORIN
     Indication: COLORECTAL CANCER METASTATIC
     Dosage: 178 MG, EVERY 2 WEEKS
     Route: 042
     Dates: start: 20200227, end: 20200709
  3. 5?FU [FLUOROURACIL] [Concomitant]
     Active Substance: FLUOROURACIL
     Indication: COLORECTAL CANCER METASTATIC
     Dosage: 1780 MG, EVERY 2 WEEKS
     Route: 042
     Dates: start: 20200227, end: 20200709
  4. IRINOTECAN [Concomitant]
     Active Substance: IRINOTECAN
     Indication: COLORECTAL CANCER METASTATIC
     Dosage: 320 MG, EVERY 2 WEEKS
     Route: 042
     Dates: start: 20200227, end: 20200709

REACTIONS (2)
  - Skin toxicity [Not Recovered/Not Resolved]
  - Off label use [Unknown]

NARRATIVE: CASE EVENT DATE: 20200727
